FAERS Safety Report 8337791-3 (Version None)
Quarter: 2012Q2

REPORT INFORMATION
  Report Type: 
  Country: None (occurrence: None)
  Receive Date: 20120504
  Receipt Date: 20120428
  Transmission Date: 20120825
  Serious: Yes (Other)
  Sender: FDA-Public Use
  Company Number: US-GLAXOSMITHKLINE-A0975973A

PATIENT
  Age: 6 Year
  Sex: Male

DRUGS (3)
  1. VERAMYST [Suspect]
     Indication: HYPERSENSITIVITY
     Dosage: 1SPR PER DAY
     Route: 045
     Dates: start: 20120404
  2. CETIRIZINE HCL [Concomitant]
  3. OLOPATADINE HCL [Concomitant]

REACTIONS (5)
  - WHEEZING [None]
  - BRONCHOSPASM [None]
  - BRONCHITIS CHEMICAL [None]
  - RESPIRATORY DISTRESS [None]
  - DYSPNOEA [None]
